FAERS Safety Report 17656825 (Version 1)
Quarter: 2020Q2

REPORT INFORMATION
  Report Type: Spontaneous
  Country: US (occurrence: US)
  Receive Date: 20200410
  Receipt Date: 20200410
  Transmission Date: 20200713
  Serious: No
  Sender: FDA-Public Use
  Company Number: US-PERRIGO-19US016987

PATIENT
  Age: 71 Year
  Sex: Female
  Weight: 56.69 kg

DRUGS (2)
  1. PSEUDOEPHEDRINE HYDROCHLORIDE. [Suspect]
     Active Substance: PSEUDOEPHEDRINE HYDROCHLORIDE
     Indication: MIDDLE EAR EFFUSION
     Dosage: 120 MG, PRN
     Route: 048
  2. PSEUDOEPHEDRINE HYDROCHLORIDE. [Suspect]
     Active Substance: PSEUDOEPHEDRINE HYDROCHLORIDE
     Indication: PARANASAL SINUS DISCOMFORT

REACTIONS (2)
  - Off label use [Unknown]
  - Product administration error [Unknown]
